FAERS Safety Report 5524960-0 (Version None)
Quarter: 2007Q4

REPORT INFORMATION
  Report Type: 
  Country: None (occurrence: None)
  Receive Date: 20071126
  Receipt Date: 20071113
  Transmission Date: 20080405
  Serious: Yes (Hospitalization)
  Sender: FDA-Public Use
  Company Number: JP-ELI_LILLY_AND_COMPANY-JP200711003090

PATIENT
  Age: 40 Year
  Sex: Male
  Weight: 83 kg

DRUGS (5)
  1. ZYPREXA [Suspect]
     Indication: SCHIZOPHRENIA
     Dosage: 17.5 MG, DAILY (1/D)
     Route: 048
     Dates: start: 20010823, end: 20070101
  2. ZYPREXA [Suspect]
     Dosage: 5 MG, DAILY (1/D)
     Route: 048
     Dates: start: 20070101
  3. PROMETHAZINE [Concomitant]
     Dosage: 25 MG, UNKNOWN
     Route: 065
  4. BIPERIDEN HYDROCHLORIDE TAB [Concomitant]
     Dosage: UNK, UNKNOWN
     Route: 065
  5. SENNOSIDE [Concomitant]
     Dosage: UNK, UNKNOWN
     Route: 065

REACTIONS (3)
  - HYPERGLYCAEMIA [None]
  - PSYCHIATRIC SYMPTOM [None]
  - WEIGHT INCREASED [None]
